FAERS Safety Report 9271750 (Version 4)
Quarter: 2013Q3

REPORT INFORMATION
  Report Type: Spontaneous
  Country: JP (occurrence: JP)
  Receive Date: 20130506
  Receipt Date: 20130909
  Transmission Date: 20140515
  Serious: Yes (Hospitalization)
  Sender: FDA-Public Use
  Company Number: JP-PFIZER INC-2013137346

PATIENT
  Sex: 0

DRUGS (3)
  1. JZOLOFT [Suspect]
     Indication: DEPRESSION
     Dosage: 50 MG, 1X/DAY
     Route: 048
  2. LIPITOR [Suspect]
     Indication: HYPERCHOLESTEROLAEMIA
     Dosage: 10 MG, 1X/DAY
     Route: 048
  3. SYMMETREL [Concomitant]
     Dosage: UNK

REACTIONS (3)
  - Fall [Recovered/Resolved]
  - Fracture [Recovered/Resolved]
  - Dysphagia [Unknown]
